FAERS Safety Report 7497786-9 (Version None)
Quarter: 2011Q2

REPORT INFORMATION
  Report Type: 
  Country: None (occurrence: None)
  Receive Date: 20110524
  Receipt Date: 20110425
  Transmission Date: 20111010
  Serious: Yes (Hospitalization, Other)
  Sender: FDA-Public Use
  Company Number: US-BAYER-201038956NA

PATIENT
  Age: 37 Year
  Sex: Female
  Weight: 68.027 kg

DRUGS (8)
  1. FLUOXETINE [Concomitant]
  2. AMANTADINE HCL [Concomitant]
  3. PROPRANOLOL [Concomitant]
  4. FAMOTIDINE [Concomitant]
  5. YAZ [Suspect]
     Indication: PRODUCT USED FOR UNKNOWN INDICATION
     Dosage: UNK
     Route: 048
     Dates: start: 20060101, end: 20080101
  6. YASMIN [Suspect]
     Dosage: UNK
     Dates: start: 20060101, end: 20080101
  7. ZYRTEC [Concomitant]
  8. PAROXETINE HCL [Concomitant]

REACTIONS (4)
  - CHOLECYSTITIS CHRONIC [None]
  - ABDOMINAL PAIN [None]
  - CHOLELITHIASIS [None]
  - GALLBLADDER NON-FUNCTIONING [None]
